FAERS Safety Report 4738804-8 (Version None)
Quarter: 2005Q3

REPORT INFORMATION
  Report Type: 
  Country: None (occurrence: None)
  Receive Date: 20050804
  Receipt Date: 20050721
  Transmission Date: 20060218
  Serious: Yes (Life-Threatening, Hospitalization)
  Sender: FDA-Public Use
  Company Number: RENA-11389

PATIENT
  Age: 72 Year
  Sex: Male

DRUGS (11)
  1. PHOSBLOCK - 250 MG TABLET [Suspect]
     Indication: HYPERPHOSPHATAEMIA
     Dosage: 3 G DAILY PO
     Route: 048
     Dates: start: 20041207, end: 20050508
  2. PHOSBLOCK - 250 MG TABLET [Suspect]
     Indication: HYPERPHOSPHATAEMIA
     Dosage: 2.25 G DAILY PO
     Route: 048
     Dates: start: 20040408, end: 20041206
  3. PHOSBLOCK - 250 MG TABLET [Suspect]
     Indication: HYPERPHOSPHATAEMIA
     Dosage: 1.5 G DAILY PO
     Route: 048
     Dates: start: 20040128, end: 20040407
  4. PHOSBLOCK - 250 MG TABLET [Suspect]
     Indication: HYPERPHOSPHATAEMIA
     Dosage: 0.75 G DAILY PO
     Route: 048
     Dates: start: 20030724, end: 20040127
  5. CALCIUM CARBONATE [Concomitant]
  6. CANDESARTAN CILEXETIL [Concomitant]
  7. NIFEDIPINE [Concomitant]
  8. TICLOPIDINE HYDROCHLORIDE [Concomitant]
  9. ALLOPURINOL [Concomitant]
  10. EPOETIN ALFA [Concomitant]
  11. STEROID THERAPY NOS [Concomitant]

REACTIONS (4)
  - DIVERTICULAR PERFORATION [None]
  - DIVERTICULUM INTESTINAL [None]
  - GASTROINTESTINAL NECROSIS [None]
  - LARGE INTESTINE PERFORATION [None]
